FAERS Safety Report 4709954-7 (Version None)
Quarter: 2005Q3

REPORT INFORMATION
  Report Type: 
  Country: None (occurrence: None)
  Receive Date: 20050706
  Receipt Date: 20050624
  Transmission Date: 20060218
  Serious: Yes (Disabling)
  Sender: FDA-Public Use
  Company Number: 200510598BVD

PATIENT
  Age: 67 Year
  Sex: Male
  Weight: 75 kg

DRUGS (10)
  1. AVELOX [Suspect]
     Indication: MYCOPLASMA INFECTION
     Dosage: 400 MG, TOTAL DAILY, ORAL
     Route: 048
     Dates: start: 20040803, end: 20040813
  2. AVELOX [Suspect]
     Indication: MYCOPLASMA INFECTION
     Dosage: 400 MG, TOTAL DAILY, ORAL
     Route: 048
     Dates: start: 20050101, end: 20050601
  3. CONCOR COR [Concomitant]
  4. ATROVENT [Concomitant]
  5. RIFAMPICIN [Concomitant]
  6. ETHAMBUTOL HCL [Concomitant]
  7. EREMFAT [Concomitant]
  8. GEMTAMYCIN [Concomitant]
  9. CIPRO [Concomitant]
  10. KLACID 500 [Concomitant]

REACTIONS (23)
  - ARRHYTHMIA [None]
  - ATRIAL FIBRILLATION [None]
  - ATYPICAL MYCOBACTERIAL INFECTION [None]
  - BACTERIA SPUTUM IDENTIFIED [None]
  - CONDITION AGGRAVATED [None]
  - DISEASE PROGRESSION [None]
  - GENERAL PHYSICAL HEALTH DETERIORATION [None]
  - HAEMOPTYSIS [None]
  - LUNG INFECTION [None]
  - LUNG INFILTRATION [None]
  - MUSCLE ATROPHY [None]
  - MYCOBACTERIUM KANSASII INFECTION [None]
  - OEDEMA PERIPHERAL [None]
  - PNEUMOTHORAX [None]
  - POLYNEUROPATHY [None]
  - PSEUDOMONAS INFECTION [None]
  - PULMONARY NECROSIS [None]
  - RESTLESS LEGS SYNDROME [None]
  - STAPHYLOCOCCAL INFECTION [None]
  - SUPERINFECTION [None]
  - TACHYCARDIA [None]
  - TUBERCULOSIS [None]
  - WEIGHT DECREASED [None]
